FAERS Safety Report 6319865-1 (Version None)
Quarter: 2009Q3

REPORT INFORMATION
  Report Type: 
  Country: None (occurrence: None)
  Receive Date: 20090822
  Receipt Date: 20081009
  Transmission Date: 20100115
  Serious: No
  Sender: FDA-Public Use
  Company Number: US-ABBOTT-08P-163-0480636-00

PATIENT
  Sex: Male
  Weight: 77.18 kg

DRUGS (7)
  1. NIASPAN [Suspect]
     Indication: BLOOD CHOLESTEROL
     Dosage: 1/2 TAB DAILY
     Route: 048
     Dates: start: 20080801
  2. NIASPAN [Suspect]
     Dosage: CUT TABLET IN HALF FOR ONE WEEK
  3. NIASPAN [Suspect]
  4. NIASPAN [Suspect]
  5. ASPIRIN [Concomitant]
     Indication: PROPHYLAXIS
     Route: 048
  6. SIMVASTATIN [Concomitant]
     Indication: BLOOD CHOLESTEROL
     Route: 048
     Dates: start: 20080801
  7. CLOPIDOGREL [Concomitant]
     Indication: CARDIAC DISORDER
     Route: 048
     Dates: start: 20080801

REACTIONS (3)
  - ERYTHEMA [None]
  - FLUSHING [None]
  - PAIN OF SKIN [None]
